FAERS Safety Report 4466235-7 (Version None)
Quarter: 2004Q4

REPORT INFORMATION
  Report Type: 
  Country: None (occurrence: None)
  Receive Date: 20041005
  Receipt Date: 20040909
  Transmission Date: 20050328
  Serious: Yes (Other)
  Sender: FDA-Public Use
  Company Number: SG-BRISTOL-MYERS SQUIBB COMPANY-12697801

PATIENT
  Age: 44 Year
  Sex: Male

DRUGS (3)
  1. REYATAZ [Suspect]
     Indication: HIV INFECTION
     Dosage: ONCE IN THE MORNING
     Route: 048
     Dates: start: 20040624, end: 20040812
  2. COMBIVIR [Concomitant]
     Dates: start: 19991101
  3. RITONAVIR [Concomitant]
     Dates: start: 20040624

REACTIONS (4)
  - DYSPNOEA [None]
  - MUSCLE CRAMP [None]
  - OEDEMA PERIPHERAL [None]
  - PITTING OEDEMA [None]
